FAERS Safety Report 23712998 (Version 1)
Quarter: 2024Q2

REPORT INFORMATION
  Report Type: Spontaneous
  Country: NO (occurrence: NO)
  Receive Date: 20240405
  Receipt Date: 20240405
  Transmission Date: 20240716
  Serious: Yes (Other)
  Sender: FDA-Public Use
  Company Number: NO-TEVA-VS-3175259

PATIENT
  Sex: Female

DRUGS (1)
  1. QUETIAPINE [Suspect]
     Active Substance: QUETIAPINE
     Indication: Product used for unknown indication
     Route: 065
     Dates: start: 202206

REACTIONS (9)
  - Chest pain [Unknown]
  - Discomfort [Unknown]
  - Pruritus [Unknown]
  - Chest discomfort [Unknown]
  - Myocardial infarction [Unknown]
  - Chills [Unknown]
  - Contusion [Unknown]
  - Haemorrhage [Unknown]
  - Paralysis [Unknown]
